FAERS Safety Report 4877677-X (Version None)
Quarter: 2006Q1

REPORT INFORMATION
  Report Type: 
  Country: None (occurrence: None)
  Receive Date: 20060109
  Receipt Date: 20051219
  Transmission Date: 20060701
  Serious: Yes (Hospitalization, Other)
  Sender: FDA-Public Use
  Company Number: 2005146091

PATIENT
  Sex: Male
  Weight: 81.6475 kg

DRUGS (12)
  1. DEPO-MEDROL [Suspect]
     Indication: INTERVERTEBRAL DISC PROTRUSION
     Dosage: (160 MG,) EPIDURAL
     Route: 008
     Dates: start: 20030201
  2. NEURONTIN [Suspect]
     Indication: BACK PAIN
     Dates: start: 20021011
  3. ZOLOFT [Suspect]
     Indication: DEPRESSION
     Dosage: (50 MG,)
     Dates: start: 20030101, end: 20030101
  4. ATENOLOL [Concomitant]
  5. ALTACE [Concomitant]
  6. ASPIRIN [Concomitant]
  7. ZOCOR [Concomitant]
  8. ANALGESICS (ANALGESICS) [Concomitant]
  9. SOMA [Concomitant]
  10. ZANAFLEX [Concomitant]
  11. TOPROL-XL [Concomitant]
  12. ALL OTHER THERAPEUTIC PRODUCTS (ALL OTHER THERAPEUTIC PRODUCTS) [Concomitant]

REACTIONS (18)
  - AMNESIA [None]
  - ARTHRALGIA [None]
  - CHILLS [None]
  - CONSTIPATION [None]
  - DEPRESSION [None]
  - FEELING ABNORMAL [None]
  - GASTROINTESTINAL DISORDER [None]
  - HEADACHE [None]
  - INSOMNIA [None]
  - MOOD SWINGS [None]
  - NERVOUSNESS [None]
  - OFF LABEL USE [None]
  - OSTEONECROSIS [None]
  - PAIN [None]
  - SUICIDAL IDEATION [None]
  - THERAPY NON-RESPONDER [None]
  - VISION BLURRED [None]
  - VISUAL DISTURBANCE [None]
